FAERS Safety Report 5515408-0 (Version None)
Quarter: 2007Q4

REPORT INFORMATION
  Report Type: 
  Country: None (occurrence: None)
  Receive Date: 20071113
  Receipt Date: 20070209
  Transmission Date: 20080405
  Serious: Yes (Hospitalization)
  Sender: FDA-Public Use
  Company Number: A0639034A

PATIENT
  Age: 54 Year
  Sex: Male

DRUGS (4)
  1. COREG [Suspect]
     Dosage: 25MG TWICE PER DAY
     Route: 048
     Dates: start: 20020101, end: 20061101
  2. DIGITEK [Concomitant]
  3. ACCUPRIL [Concomitant]
  4. WARFARIN SODIUM [Concomitant]

REACTIONS (2)
  - DIABETES MELLITUS [None]
  - DYSPNOEA [None]
